FAERS Safety Report 4747031-X (Version None)
Quarter: 2005Q3

REPORT INFORMATION
  Report Type: 
  Country: None (occurrence: None)
  Receive Date: 20050817
  Receipt Date: 20050805
  Transmission Date: 20060218
  Serious: Yes (Hospitalization)
  Sender: FDA-Public Use
  Company Number: DE-BRISTOL-MYERS SQUIBB COMPANY-13077987

PATIENT
  Age: 68 Year
  Sex: Female
  Weight: 80 kg

DRUGS (10)
  1. CETUXIMAB [Suspect]
     Indication: COLORECTAL CANCER METASTATIC
     Route: 041
     Dates: start: 20050617
  2. IRINOTECAN [Suspect]
     Indication: COLORECTAL CANCER METASTATIC
     Dates: start: 20050617
  3. AMARYL [Concomitant]
  4. APONAL [Concomitant]
  5. XIMOVAN [Concomitant]
  6. METOCLOPRAMIDE [Concomitant]
  7. METOPROLOL [Concomitant]
  8. RENACOR [Concomitant]
  9. PANTOZOL [Concomitant]
  10. OPIUM TINCTURE [Concomitant]

REACTIONS (1)
  - CONFUSIONAL STATE [None]
